FAERS Safety Report 4954481-5 (Version None)
Quarter: 2006Q1

REPORT INFORMATION
  Report Type: 
  Country: None (occurrence: None)
  Receive Date: 20060327
  Receipt Date: 20060112
  Transmission Date: 20060701
  Serious: Yes (Life-Threatening)
  Sender: FDA-Public Use
  Company Number: BE-AVENTIS-200610443GDDC

PATIENT
  Age: 87 Year
  Sex: Female

DRUGS (10)
  1. LANTUS [Suspect]
     Dosage: DOSE: 14 - 16
     Route: 058
     Dates: start: 20051215, end: 20060101
  2. LANTUS [Suspect]
     Route: 058
     Dates: start: 20060111
  3. OPTIPEN (INSULIN PUMP) [Suspect]
  4. DISTILLED WATER [Suspect]
     Dates: start: 20060101, end: 20060101
  5. TAVONIN [Concomitant]
     Indication: MEMORY IMPAIRMENT
  6. ASAFLOW [Concomitant]
     Indication: PROPHYLAXIS
     Dosage: DOSE: UNK
  7. GLUCOSAMINE [Concomitant]
     Indication: ARTHRITIS
     Dosage: DOSE: UNK
  8. NOVONORM [Concomitant]
     Indication: DIABETES MELLITUS
     Dosage: DOSE: UNK
  9. ZESTORETIC [Concomitant]
     Dosage: DOSE: UNK
  10. MOXONIDINE [Concomitant]
     Dosage: DOSE: UNK

REACTIONS (5)
  - ANXIETY [None]
  - DRUG DISPENSING ERROR [None]
  - HYPERGLYCAEMIA [None]
  - VISUAL DISTURBANCE [None]
  - WRONG DRUG ADMINISTERED [None]
